FAERS Safety Report 10866404 (Version 1)
Quarter: 2015Q1

REPORT INFORMATION
  Report Type: Spontaneous
  Country: US (occurrence: None)
  Receive Date: 20150219
  Receipt Date: 20150219
  Transmission Date: 20150721
  Serious: Yes (Hospitalization)
  Sender: FDA-Public Use
  Company Number: None

PATIENT
  Age: 65 Year
  Sex: Male
  Weight: 108.6 kg

DRUGS (29)
  1. PRILOSEC [Concomitant]
     Active Substance: OMEPRAZOLE MAGNESIUM
  2. SALMON OIL [Concomitant]
     Active Substance: FISH OIL
  3. CIPROFLOXACIN. [Concomitant]
     Active Substance: CIPROFLOXACIN
  4. ZITHROMAX [Concomitant]
     Active Substance: AZITHROMYCIN DIHYDRATE
  5. LANSOPRAZOLE. [Concomitant]
     Active Substance: LANSOPRAZOLE
  6. MULTIVITAMIN [Concomitant]
     Active Substance: VITAMINS
  7. CARAFATE [Concomitant]
     Active Substance: SUCRALFATE
  8. CLARITIN [Concomitant]
     Active Substance: LORATADINE
  9. CHOLESTYRAMINE. [Concomitant]
     Active Substance: CHOLESTYRAMINE
  10. LACTOBACILLUS [Concomitant]
     Active Substance: LACTOBACILLUS ACIDOPHILUS
  11. ZINC SULFATE [Concomitant]
     Active Substance: ZINC SULFATE\ZINC SULFATE ANHYDROUS
  12. XIFAXAN [Concomitant]
     Active Substance: RIFAXIMIN
  13. SINGULAIR [Concomitant]
     Active Substance: MONTELUKAST SODIUM
  14. DOXYCYCLINE. [Concomitant]
     Active Substance: DOXYCYCLINE
  15. RIBAVIRIN 600MG [Suspect]
     Active Substance: RIBAVIRIN
     Indication: HEPATITIS C
     Route: 048
     Dates: start: 20140228, end: 20150203
  16. PROZAC [Concomitant]
     Active Substance: FLUOXETINE HYDROCHLORIDE
  17. ALPA LIPOIC ACID [Concomitant]
  18. LASIX [Concomitant]
     Active Substance: FUROSEMIDE
  19. AUGMENTIN [Concomitant]
     Active Substance: AMOXICILLIN\CLAVULANATE POTASSIUM
  20. LUNESTA [Concomitant]
     Active Substance: ESZOPICLONE
  21. AMILORIDE [Concomitant]
     Active Substance: AMILORIDE
  22. URSODIAL [Concomitant]
  23. VATIMIN C [Concomitant]
  24. SOFOSBUVIR 400MG [Suspect]
     Active Substance: SOFOSBUVIR
     Indication: HEPATITIS C
     Route: 048
     Dates: start: 20140228, end: 20150203
  25. CORED [Concomitant]
  26. FLONASE [Concomitant]
     Active Substance: FLUTICASONE PROPIONATE
  27. GABAPENTIN. [Concomitant]
     Active Substance: GABAPENTIN
  28. PHENERGAN [Concomitant]
     Active Substance: PROMETHAZINE HYDROCHLORIDE
  29. LACTULOSE. [Concomitant]
     Active Substance: LACTULOSE

REACTIONS (2)
  - Disease recurrence [None]
  - Hepatic encephalopathy [None]

NARRATIVE: CASE EVENT DATE: 20140830
